FAERS Safety Report 20226460 (Version 1)
Quarter: 2021Q4

REPORT INFORMATION
  Report Type: Report from Study
  Country: IT (occurrence: IT)
  Receive Date: 20211224
  Receipt Date: 20211224
  Transmission Date: 20220303
  Serious: Yes (Hospitalization)
  Sender: FDA-Public Use
  Company Number: None

PATIENT
  Age: 24 Year
  Sex: Female

DRUGS (3)
  1. TAVOR (LORAZEPAM) [Suspect]
     Active Substance: LORAZEPAM
     Dosage: 20 TABLETS (50 MG)
     Route: 048
     Dates: start: 20210419
  2. PREGABALIN [Suspect]
     Active Substance: PREGABALIN
     Dosage: 14 TABLETS (1050 MG)
     Route: 048
     Dates: start: 20210419
  3. ARIPIPRAZOLE [Suspect]
     Active Substance: ARIPIPRAZOLE
     Dosage: 28 TABLETS (420 MG)
     Route: 048
     Dates: start: 20210419

REACTIONS (3)
  - Overdose [Unknown]
  - Sedation complication [Unknown]
  - Drug abuse [Unknown]

NARRATIVE: CASE EVENT DATE: 20210419
